FAERS Safety Report 12219147 (Version 1)
Quarter: 2016Q1

REPORT INFORMATION
  Report Type: Report from Study
  Country: US (occurrence: US)
  Receive Date: 20160329
  Receipt Date: 20160329
  Transmission Date: 20160526
  Serious: No
  Sender: FDA-Public Use
  Company Number: PHEH2016US007442

PATIENT
  Age: 28 Year
  Sex: Female
  Weight: 65.7 kg

DRUGS (1)
  1. GILENYA [Suspect]
     Active Substance: FINGOLIMOD HYDROCHLORIDE
     Indication: MULTIPLE SCLEROSIS
     Dosage: 0.5 MG, QD
     Route: 048
     Dates: start: 20160226

REACTIONS (4)
  - Chest pain [Unknown]
  - Hypoaesthesia [Unknown]
  - Palpitations [Not Recovered/Not Resolved]
  - Chest discomfort [Unknown]

NARRATIVE: CASE EVENT DATE: 20160226
